FAERS Safety Report 5112758-7 (Version None)
Quarter: 2006Q3

REPORT INFORMATION
  Report Type: 
  Country: None (occurrence: None)
  Receive Date: 20060731
  Receipt Date: 20060629
  Transmission Date: 20061208
  Serious: No
  Sender: FDA-Public Use
  Company Number: 2006PV016705

PATIENT
  Age: 46 Year
  Sex: Female
  Weight: 97.5234 kg

DRUGS (7)
  1. BYETTA [Suspect]
     Indication: DIABETES MELLITUS
     Dosage: 10 MCG;BID;SC
     Route: 058
     Dates: start: 20060605
  2. GLUCOPHAGE [Concomitant]
  3. ACTOS [Concomitant]
  4. GLUCOTROL [Concomitant]
     Indication: DIABETES MELLITUS NON-INSULIN-DEPENDENT
     Dosage: 10 MCG; BID; SC
     Route: 058
     Dates: start: 20060605
  5. GLUCOPHAGE [Concomitant]
  6. ACTOS [Concomitant]
  7. GLUCOTROL [Concomitant]

REACTIONS (2)
  - OCULAR HYPERAEMIA [None]
  - VISION BLURRED [None]
